FAERS Safety Report 6401614-X (Version None)
Quarter: 2009Q4

REPORT INFORMATION
  Report Type: 
  Country: None (occurrence: None)
  Receive Date: 20091009
  Receipt Date: 20090929
  Transmission Date: 20100525
  Serious: Yes (Other)
  Sender: FDA-Public Use
  Company Number: MC200900372

PATIENT
  Sex: Female

DRUGS (1)
  1. ANGIOMAX [Suspect]
     Dosage: RENAL DOSE, INTRAVENOUS
     Route: 042
     Dates: start: 20090924, end: 20090924

REACTIONS (4)
  - DISCOMFORT [None]
  - ERYTHEMA [None]
  - PRURITUS [None]
  - URTICARIA [None]
